FAERS Safety Report 15749662 (Version 1)
Quarter: 2018Q4

REPORT INFORMATION
  Report Type: Spontaneous
  Country: US (occurrence: US)
  Receive Date: 20181220
  Receipt Date: 20181220
  Transmission Date: 20190205
  Serious: Yes (Other)
  Sender: FDA-Public Use
  Company Number: None

PATIENT
  Age: 60 Year
  Sex: Female
  Weight: 87.75 kg

DRUGS (9)
  1. OSTEO BI-FLEX EASE [Concomitant]
  2. LETROZOLE 2.5 MG [Suspect]
     Active Substance: LETROZOLE
     Indication: BREAST CANCER METASTATIC
     Dosage: ?          QUANTITY:1 TABLET(S);?
     Route: 048
     Dates: start: 20170725, end: 20180322
  3. SIMVASTATIN. [Concomitant]
     Active Substance: SIMVASTATIN
  4. CALCIUM [Concomitant]
     Active Substance: CALCIUM
  5. IBRANCE [Concomitant]
     Active Substance: PALBOCICLIB
  6. ANASTROZOLE. [Concomitant]
     Active Substance: ANASTROZOLE
  7. XGEVA [Concomitant]
     Active Substance: DENOSUMAB
  8. LEVOTHYROXINE. [Concomitant]
     Active Substance: LEVOTHYROXINE
  9. ONE A DAY WOMEN^S 50+ [Concomitant]

REACTIONS (1)
  - Trigger finger [None]

NARRATIVE: CASE EVENT DATE: 20180203
